FAERS Safety Report 9926979 (Version 3)
Quarter: 2015Q1

REPORT INFORMATION
  Report Type: Spontaneous
  Country: US (occurrence: US)
  Receive Date: 20140226
  Receipt Date: 20150304
  Transmission Date: 20150721
  Serious: No
  Sender: FDA-Public Use
  Company Number: US-AMGEN-USASP2013088906

PATIENT
  Age: 60 Year
  Sex: Male

DRUGS (2)
  1. HALOBETASOL PROPIONATE. [Concomitant]
     Active Substance: HALOBETASOL PROPIONATE
     Dosage: 50 MG, BID
     Route: 061
     Dates: start: 20130913
  2. ENBREL [Suspect]
     Active Substance: ETANERCEPT
     Indication: PSORIASIS
     Dosage: 50 MG, QWK
     Route: 058
     Dates: start: 200612

REACTIONS (1)
  - Psoriasis [Not Recovered/Not Resolved]
